FAERS Safety Report 11150715 (Version 1)
Quarter: 2015Q2

REPORT INFORMATION
  Report Type: Spontaneous
  Country: FR (occurrence: FR)
  Receive Date: 20150601
  Receipt Date: 20150601
  Transmission Date: 20150821
  Serious: Yes (Hospitalization)
  Sender: FDA-Public Use
  Company Number: FR-BRISTOL-MYERS SQUIBB COMPANY-BMS-2015-033201

PATIENT
  Age: 43 Year
  Sex: Male

DRUGS (1)
  1. BARACLUDE [Suspect]
     Active Substance: ENTECAVIR
     Indication: PRODUCT USED FOR UNKNOWN INDICATION
     Dosage: 0.5 MG, QD
     Route: 048
     Dates: start: 201411

REACTIONS (11)
  - Functional gastrointestinal disorder [Recovered/Resolved]
  - Psoriasis [Recovered/Resolved]
  - Tachycardia [Unknown]
  - Cough [Recovered/Resolved]
  - Weight decreased [Recovered/Resolved]
  - Affective disorder [Unknown]
  - Headache [Recovered/Resolved]
  - Hypertension [Recovered/Resolved]
  - Oropharyngeal pain [Unknown]
  - Insomnia [Recovered/Resolved]
  - Arthralgia [Recovered/Resolved]

NARRATIVE: CASE EVENT DATE: 20150402
